FAERS Safety Report 15279771 (Version 1)
Quarter: 2018Q3

REPORT INFORMATION
  Report Type: Spontaneous
  Country: US (occurrence: US)
  Receive Date: 20180730
  Receipt Date: 20180730
  Transmission Date: 20181010
  Serious: No
  Sender: FDA-Public Use
  Company Number: None

PATIENT
  Age: 75 Year
  Sex: Female

DRUGS (2)
  1. VERZENIO [Suspect]
     Active Substance: ABEMACICLIB
     Indication: NEOPLASM MALIGNANT
     Route: 048
     Dates: start: 20180620, end: 20180730
  2. VERZENIO [Concomitant]
     Active Substance: ABEMACICLIB
     Dates: start: 20180620

REACTIONS (1)
  - Somnambulism [None]

NARRATIVE: CASE EVENT DATE: 20180725
